FAERS Safety Report 7540797-5 (Version None)
Quarter: 2011Q2

REPORT INFORMATION
  Report Type: 
  Country: None (occurrence: None)
  Receive Date: 20110610
  Receipt Date: 20110607
  Transmission Date: 20111010
  Serious: Yes (Life-Threatening, Hospitalization, Other)
  Sender: FDA-Public Use
  Company Number: DE-PFIZER INC-2011079776

PATIENT
  Sex: Female

DRUGS (4)
  1. PLANUM [Concomitant]
     Dosage: 100MG 2-4X, DAY
  2. LYRICA [Suspect]
     Indication: NEURALGIA
     Dosage: 300 MG, 2X/DAY
  3. DOXEPIN [Concomitant]
     Dosage: 400 MG, 1X/DAY
  4. DULOXETINE [Concomitant]
     Dosage: 60 MG, 1X/DAY

REACTIONS (6)
  - DRUG ABUSE [None]
  - CONVULSION [None]
  - SUICIDE ATTEMPT [None]
  - LOSS OF CONSCIOUSNESS [None]
  - WITHDRAWAL SYNDROME [None]
  - FALL [None]
